FAERS Safety Report 5388815-7 (Version None)
Quarter: 2007Q3

REPORT INFORMATION
  Report Type: 
  Country: None (occurrence: None)
  Receive Date: 20070712
  Receipt Date: 20070705
  Transmission Date: 20080115
  Serious: Yes (Disabling)
  Sender: FDA-Public Use
  Company Number: 2007SP002465

PATIENT
  Age: 56 Year
  Sex: Male

DRUGS (2)
  1. LUNESTA [Suspect]
     Indication: INSOMNIA
     Dosage: 3 MG; HS; ORAL
     Route: 048
     Dates: end: 20070701
  2. LUNESTA [Suspect]
     Indication: INSOMNIA
     Dosage: 3 MG; HS; ORAL
     Route: 048
     Dates: start: 20070705, end: 20070705

REACTIONS (5)
  - DRUG EFFECT DECREASED [None]
  - FATIGUE [None]
  - IMPAIRED DRIVING ABILITY [None]
  - IMPRISONMENT [None]
  - ROAD TRAFFIC ACCIDENT [None]
